FAERS Safety Report 21732116 (Version 1)
Quarter: 2022Q4

REPORT INFORMATION
  Report Type: Spontaneous
  Country: CH (occurrence: CH)
  Receive Date: 20221215
  Receipt Date: 20221215
  Transmission Date: 20230112
  Serious: Yes (Other)
  Sender: FDA-Public Use
  Company Number: CH-BRISTOL-MYERS SQUIBB COMPANY-2022-148113

PATIENT
  Sex: Male

DRUGS (9)
  1. OPDIVO [Suspect]
     Active Substance: NIVOLUMAB
     Indication: Malignant melanoma
     Dosage: 2 INFUSIONS TOOK PLACE EACH WITH 80 MG OPDIVO
     Dates: start: 20221027
  2. OPDIVO [Suspect]
     Active Substance: NIVOLUMAB
     Indication: Immunochemotherapy
  3. YERVOY [Suspect]
     Active Substance: IPILIMUMAB
     Indication: Malignant melanoma
     Dates: start: 20221027
  4. YERVOY [Suspect]
     Active Substance: IPILIMUMAB
     Indication: Immunochemotherapy
  5. DEXAMETHASONE SODIUM PHOSPHATE [Suspect]
     Active Substance: DEXAMETHASONE SODIUM PHOSPHATE
     Indication: Metastatic malignant melanoma
     Dosage: DAILY DOSE: 2-1-0
     Dates: start: 20221027
  6. DEXAMETHASONE SODIUM PHOSPHATE [Suspect]
     Active Substance: DEXAMETHASONE SODIUM PHOSPHATE
     Indication: Immunochemotherapy
     Dosage: DOSE REDUCED TO 1-0-0 AFTER TWO WEEKS
  7. DEXAMETHASONE SODIUM PHOSPHATE [Suspect]
     Active Substance: DEXAMETHASONE SODIUM PHOSPHATE
     Dosage: 1/2-0-0 AFTER ANOTHER TWO WEEKS
  8. DEXAMETHASONE SODIUM PHOSPHATE [Suspect]
     Active Substance: DEXAMETHASONE SODIUM PHOSPHATE
     Dosage: 1-1-0 DOSE WAS INCREASED
  9. NADROPARIN CALCIUM [Suspect]
     Active Substance: NADROPARIN CALCIUM
     Indication: Product used for unknown indication
     Dosage: INTO THE ABDOMEN, DAILY

REACTIONS (7)
  - Fibrin D dimer increased [Unknown]
  - Inhibitory drug interaction [Unknown]
  - Fatigue [Unknown]
  - Coordination abnormal [Unknown]
  - Cognitive disorder [Unknown]
  - Decreased appetite [Unknown]
  - General physical health deterioration [Unknown]
